FAERS Safety Report 24214214 (Version 1)
Quarter: 2024Q3

REPORT INFORMATION
  Report Type: Spontaneous
  Country: NL (occurrence: NL)
  Receive Date: 20240815
  Receipt Date: 20240815
  Transmission Date: 20241017
  Serious: Yes (Other)
  Sender: VIFOR
  Company Number: None

PATIENT
  Age: 75 Year
  Sex: Female
  Weight: 101 kg

DRUGS (7)
  1. VELTASSA [Suspect]
     Active Substance: PATIROMER
     Indication: Hyperkalaemia
     Dates: start: 20240709, end: 20240716
  2. ENALAPRIL [Concomitant]
     Active Substance: ENALAPRIL
     Dosage: 15 MG
  3. PREGABALIN [Concomitant]
     Active Substance: PREGABALIN
  4. PANTOPRAZOLE SODIUM [Concomitant]
     Active Substance: PANTOPRAZOLE SODIUM
  5. SPIRONOLACTONE [Concomitant]
     Active Substance: SPIRONOLACTONE
     Dosage: TABLET 37.5 MG
  6. METOPROLOL [Concomitant]
     Active Substance: METOPROLOL
     Dosage: TABLET 25 MG
  7. SULFAMETHOXAZOLE\TRIMETHOPRIM [Concomitant]
     Active Substance: SULFAMETHOXAZOLE\TRIMETHOPRIM
     Dosage: TABLET, 80/400 MG (MILLIGRAM)

REACTIONS (1)
  - Renal impairment [Recovered/Resolved]

NARRATIVE: CASE EVENT DATE: 20240701
